FAERS Safety Report 7215237-6 (Version None)
Quarter: 2011Q1

REPORT INFORMATION
  Report Type: 
  Country: None (occurrence: None)
  Receive Date: 20110107
  Receipt Date: 20101228
  Transmission Date: 20110831
  Serious: Yes (Disabling, Other)
  Sender: FDA-Public Use
  Company Number: PHHY2010FR77332

PATIENT
  Sex: Female

DRUGS (7)
  1. ALDACTAZINE [Concomitant]
     Indication: HYPERTENSION
  2. TEMERIT [Suspect]
     Indication: HYPERTENSION
     Dosage: 5 MG DAILY
     Dates: start: 20101013
  3. PROZAC [Concomitant]
  4. ESOMEPRAZOLE [Concomitant]
  5. RASILEZ [Suspect]
     Indication: HYPERTENSION
     Dosage: 150 MG, QD
     Route: 048
     Dates: start: 20101013
  6. COVERAM [Suspect]
     Indication: HYPERTENSION
     Dosage: 10/10 MG DAILY
     Dates: start: 20101013
  7. GLUCOPHAGE [Concomitant]

REACTIONS (3)
  - PAIN [None]
  - EOSINOPHILIA [None]
  - POLYNEUROPATHY [None]
